FAERS Safety Report 9681008 (Version 1)
Quarter: 2013Q4

REPORT INFORMATION
  Report Type: Spontaneous
  Country: DE (occurrence: DE)
  Receive Date: 20131111
  Receipt Date: 20131111
  Transmission Date: 20140711
  Serious: Yes (Other)
  Sender: FDA-Public Use
  Company Number: DE-ASTELLAS-2013EU009683

PATIENT
  Sex: Female

DRUGS (1)
  1. VESIKUR [Suspect]
     Dosage: UNK MG, UNKNOWN/D
     Route: 065
     Dates: start: 201209, end: 20131025

REACTIONS (1)
  - Platelet count increased [Unknown]
